FAERS Safety Report 8987407 (Version 4)
Quarter: 2014Q2

REPORT INFORMATION
  Report Type: Spontaneous
  Country: US (occurrence: US)
  Receive Date: 20121226
  Receipt Date: 20140625
  Transmission Date: 20141212
  Serious: Yes (Disabling, Other)
  Sender: FDA-Public Use
  Company Number: US-009507513-1212USA008446

PATIENT
  Sex: Male
  Weight: 93.42 kg

DRUGS (1)
  1. PROPECIA [Suspect]
     Indication: ANDROGENETIC ALOPECIA
     Dosage: 1 MG, UNK
     Route: 048
     Dates: start: 200508, end: 200811

REACTIONS (20)
  - Anxiety [Not Recovered/Not Resolved]
  - Complex partial seizures [Recovered/Resolved]
  - Generalised tonic-clonic seizure [Unknown]
  - Surgery [Unknown]
  - Spinal laminectomy [Unknown]
  - Orgasm abnormal [Unknown]
  - Libido decreased [Unknown]
  - Erectile dysfunction [Unknown]
  - Semen volume decreased [Unknown]
  - Depression [Not Recovered/Not Resolved]
  - Chest discomfort [Recovered/Resolved]
  - Tinea pedis [Unknown]
  - Arthralgia [Unknown]
  - Allergic cough [Unknown]
  - Weight decreased [Unknown]
  - Insomnia [Unknown]
  - Appendicectomy [Unknown]
  - Fracture treatment [Unknown]
  - Colon adenoma [Unknown]
  - Drug ineffective [Unknown]
